FAERS Safety Report 16149605 (Version 1)
Quarter: 2019Q2

REPORT INFORMATION
  Report Type: Spontaneous
  Country: CA (occurrence: CA)
  Receive Date: 20190402
  Receipt Date: 20190402
  Transmission Date: 20190711
  Serious: Yes (Other)
  Sender: FDA-Public Use
  Company Number: CA-PFIZER INC-2019137494

PATIENT
  Age: 47 Year
  Sex: Female

DRUGS (1)
  1. SULFASALAZINE. [Suspect]
     Active Substance: SULFASALAZINE
     Indication: RHEUMATOID ARTHRITIS

REACTIONS (6)
  - Full blood count decreased [Unknown]
  - Condition aggravated [Unknown]
  - Drug interaction [Unknown]
  - Mobility decreased [Unknown]
  - Cardiac disorder [Unknown]
  - Neoplasm malignant [Unknown]
